FAERS Safety Report 5962226-5 (Version None)
Quarter: 2008Q4

REPORT INFORMATION
  Report Type: 
  Country: None (occurrence: None)
  Receive Date: 20081121
  Receipt Date: 20081119
  Transmission Date: 20090506
  Serious: No
  Sender: FDA-Public Use
  Company Number: US-B.I. PHARMACEUTICALS,INC./RIDGEFIELD-2008-BP-17552BP

PATIENT
  Age: 80 Year
  Sex: Male

DRUGS (1)
  1. SPIRIVA [Suspect]
     Indication: ASTHMA
     Route: 055

REACTIONS (1)
  - APHONIA [None]
